FAERS Safety Report 7479430-X (Version None)
Quarter: 2011Q2

REPORT INFORMATION
  Report Type: 
  Country: None (occurrence: None)
  Receive Date: 20110513
  Receipt Date: 20110509
  Transmission Date: 20111010
  Serious: Yes (Death, Other)
  Sender: FDA-Public Use
  Company Number: CN-GENZYME-FLUD-1001150

PATIENT
  Age: 82 Year

DRUGS (4)
  1. FLUDARA [Suspect]
     Dosage: 25-30 MG/M2, 1-3X DAILY, EVERY 4 WEEKS, CYCLE 2
     Route: 042
  2. CYCLOPHOSPHAMIDE [Suspect]
     Dosage: 300 MG/M2, QD 1-3X, EVERY 4 WEEKS, CYCLE 2
     Route: 042
  3. CYCLOPHOSPHAMIDE [Suspect]
     Indication: B-CELL LYMPHOMA
     Dosage: 300 MG/M2, QD 1-3X, EVERY 4 WEEKS, CYCLE 1
     Route: 042
  4. FLUDARA [Suspect]
     Indication: B-CELL LYMPHOMA
     Dosage: 25-30 MG/M2, 1-3X DAILY, EVERY 4 WEEKS, CYCLE 1
     Route: 042

REACTIONS (2)
  - INFECTION [None]
  - DEATH [None]
